FAERS Safety Report 9088148 (Version 1)
Quarter: 2013Q1

REPORT INFORMATION
  Report Type: Spontaneous
  Country: GB (occurrence: GB)
  Receive Date: 20130218
  Receipt Date: 20130218
  Transmission Date: 20140127
  Serious: Yes (Death, Hospitalization, Other)
  Sender: FDA-Public Use
  Company Number: PHHY2013GB013664

PATIENT
  Sex: Female

DRUGS (16)
  1. TAMOXIFEN [Suspect]
     Dosage: PUT ON HOLD FOR 3 MONTHS
     Dates: start: 20051113, end: 20090921
  2. FUROSEMIDE [Suspect]
     Dosage: 40 MG, UNK
     Dates: start: 20091021
  3. WARFARIN [Suspect]
     Dosage: 3 MG, UNK
     Dates: start: 20051114
  4. DIGOXIN [Suspect]
     Dosage: 125 UG, UNK
     Dates: start: 20051113, end: 20060307
  5. AUGMENTIN [Suspect]
     Dosage: 375 MG
     Dates: start: 20091105, end: 20091112
  6. FERROUS GLUCONATE [Concomitant]
     Dosage: 300 MG, UNK
     Dates: start: 1978
  7. LEVOTHYROXINE SODIUM [Concomitant]
     Dosage: 75 UG
     Dates: start: 20090615
  8. TIOTROPIUM BROMIDE [Concomitant]
     Dosage: 18 UG, UNK
     Route: 055
     Dates: start: 20090814
  9. ATENOLOL [Concomitant]
     Dosage: 25 MG, UNK
     Dates: start: 20051113, end: 20091220
  10. CANDESARTAN [Concomitant]
     Dosage: 16 MG, UNK
     Dates: start: 20090313
  11. BUCCASTEM [Concomitant]
     Indication: NAUSEA
     Dosage: 3 MG, UNK
     Dates: start: 20091104, end: 20091105
  12. BUSCOPAN [Concomitant]
     Indication: ABDOMINAL PAIN
     Dosage: 10 MG, UNK
     Dates: start: 20091104, end: 20091110
  13. FERROUS SULPHATE [Concomitant]
     Indication: ANAEMIA
     Dosage: 200MG X 3
     Dates: start: 20091127
  14. AMOXICILLIN [Concomitant]
     Indication: LOWER RESPIRATORY TRACT INFECTION
     Dates: start: 20091220
  15. CO-CODAMOL [Concomitant]
     Indication: CHEST PAIN
     Dosage: 1 DF, UNK
     Dates: start: 20091220
  16. LACTULOSE [Concomitant]
     Indication: ABDOMINAL PAIN UPPER
     Dosage: 300 ML, UNK
     Route: 048
     Dates: start: 20091220

REACTIONS (2)
  - Aortic aneurysm [Fatal]
  - Thrombocytopenia [Not Recovered/Not Resolved]
